FAERS Safety Report 6348469-X (Version None)
Quarter: 2009Q3

REPORT INFORMATION
  Report Type: 
  Country: None (occurrence: None)
  Receive Date: 20090911
  Receipt Date: 20090831
  Transmission Date: 20100115
  Serious: Yes (Other)
  Sender: FDA-Public Use
  Company Number: AU-RANBAXY-2009RR-26674

PATIENT
  Sex: Female

DRUGS (5)
  1. ACETAMINOPHEN [Suspect]
     Indication: BACK PAIN
     Dosage: 500 MG, QID
  2. METOPROLOL TARTRATE [Concomitant]
     Dosage: 100 MG, QD
  3. FELODIPINE [Concomitant]
     Dosage: 5 MG, QD
  4. SIMVASTATIN [Concomitant]
     Dosage: 20 MG, QD
  5. FLUPHENAZINE [Concomitant]
     Dosage: 25 MG, FORTNIGHT
     Route: 030

REACTIONS (1)
  - DRUG ERUPTION [None]
